FAERS Safety Report 12859486 (Version 1)
Quarter: 2016Q4

REPORT INFORMATION
  Report Type: Spontaneous
  Country: US (occurrence: US)
  Receive Date: 20161018
  Receipt Date: 20161018
  Transmission Date: 20170207
  Serious: Yes (Other)
  Sender: FDA-Public Use
  Company Number: US-TEVA-703750USA

PATIENT
  Age: 85 Year
  Sex: Female
  Weight: 61.2 kg

DRUGS (15)
  1. PREDNISONE. [Concomitant]
     Active Substance: PREDNISONE
     Dates: start: 201608
  2. ANAKINRA [Concomitant]
     Active Substance: ANAKINRA
     Dates: start: 201606
  3. JAKAFI [Suspect]
     Active Substance: RUXOLITINIB
     Dosage: 10 - 20MG
     Route: 048
     Dates: start: 20141201, end: 20160909
  4. ALLOPURINOL. [Concomitant]
     Active Substance: ALLOPURINOL
     Dates: end: 201609
  5. JAKAFI [Suspect]
     Active Substance: RUXOLITINIB
     Dosage: 5MG ALT 10MG
     Route: 048
     Dates: start: 20160725
  6. ALLOPURINOL. [Concomitant]
     Active Substance: ALLOPURINOL
     Dates: start: 201609
  7. JAKAFI [Suspect]
     Active Substance: RUXOLITINIB
     Dosage: 5MG
     Route: 048
     Dates: start: 20160906
  8. ANTIHISTAMINES [Concomitant]
     Active Substance: ANTIHISTAMINES NOS
  9. PREDNISONE. [Concomitant]
     Active Substance: PREDNISONE
     Dates: start: 2016
  10. PREDNISONE. [Concomitant]
     Active Substance: PREDNISONE
     Dates: start: 2016
  11. OMEPRAZOLE DELAYED RELEASE [Suspect]
     Active Substance: OMEPRAZOLE
     Indication: MYELOFIBROSIS
     Dosage: 10 MILLIGRAM DAILY;
     Route: 048
     Dates: start: 20141029
  12. JAKAFI [Suspect]
     Active Substance: RUXOLITINIB
     Route: 048
     Dates: start: 20160304, end: 20160502
  13. JAKAFI [Suspect]
     Active Substance: RUXOLITINIB
     Route: 048
     Dates: start: 20160509, end: 20160722
  14. JAKAFI [Suspect]
     Active Substance: RUXOLITINIB
     Indication: PRODUCT USED FOR UNKNOWN INDICATION
     Dosage: 10 MILLIGRAM DAILY;
     Route: 048
  15. WELLBUTRIN [Concomitant]
     Active Substance: BUPROPION HYDROCHLORIDE

REACTIONS (11)
  - Bedridden [Unknown]
  - Disease progression [Unknown]
  - Withdrawal syndrome [Unknown]
  - Acute leukaemia [Unknown]
  - Blast cell crisis [Unknown]
  - Blood creatine increased [Unknown]
  - Platelet count decreased [Unknown]
  - Fatigue [Unknown]
  - Renal failure [Unknown]
  - Nausea [Unknown]
  - Ureteric obstruction [Unknown]

NARRATIVE: CASE EVENT DATE: 201606
